FAERS Safety Report 13219023 (Version 1)
Quarter: 2017Q1

REPORT INFORMATION
  Report Type: Spontaneous
  Country: US (occurrence: US)
  Receive Date: 20170210
  Receipt Date: 20170210
  Transmission Date: 20170428
  Serious: No
  Sender: FDA-Public Use
  Company Number: US-009507513-1701USA009261

PATIENT
  Sex: Female

DRUGS (1)
  1. SINGULAIR [Suspect]
     Active Substance: MONTELUKAST SODIUM
     Dosage: ONCE DAILY IN THE AFTERNOON (PM)
     Route: 048

REACTIONS (3)
  - Product taste abnormal [Unknown]
  - Drug dose omission [Unknown]
  - No adverse event [Unknown]
